FAERS Safety Report 7939487-6 (Version None)
Quarter: 2011Q4

REPORT INFORMATION
  Report Type: 
  Country: None (occurrence: None)
  Receive Date: 20111125
  Receipt Date: 20111116
  Transmission Date: 20120403
  Serious: Yes (Hospitalization)
  Sender: FDA-Public Use
  Company Number: US-BAYER-2011-028490

PATIENT
  Age: 31 Year
  Sex: Female
  Weight: 100 kg

DRUGS (10)
  1. YAZ [Suspect]
     Indication: PREMENSTRUAL SYNDROME
     Dosage: UNK
     Dates: start: 20061101, end: 20081201
  2. YASMIN [Suspect]
     Indication: PREMENSTRUAL SYNDROME
     Dosage: UNK
     Dates: start: 20041101, end: 20061101
  3. YAZ [Suspect]
     Indication: MENSTRUATION IRREGULAR
  4. DROSPIRENONE AND ETHINYL ESTRADIOL [Suspect]
     Indication: MENSTRUATION IRREGULAR
     Dosage: UNK
     Dates: start: 20081201, end: 20100501
  5. YASMIN [Suspect]
     Indication: MENSTRUATION IRREGULAR
  6. YAZ [Suspect]
     Indication: DYSMENORRHOEA
  7. SYNTHROID [Concomitant]
     Indication: HYPOTHYROIDISM
     Dosage: 75 MCG/24HR, UNK
     Route: 048
     Dates: start: 20081001
  8. DROSPIRENONE AND ETHINYL ESTRADIOL [Suspect]
     Indication: DYSMENORRHOEA
  9. YASMIN [Suspect]
     Indication: DYSMENORRHOEA
  10. DROSPIRENONE AND ETHINYL ESTRADIOL [Suspect]
     Indication: PREMENSTRUAL SYNDROME
     Dosage: UNK
     Dates: start: 20071101, end: 20100501

REACTIONS (5)
  - ABDOMINAL PAIN [None]
  - CHOLELITHIASIS [None]
  - CATHETER SITE PAIN [None]
  - PAIN [None]
  - CHOLECYSTITIS CHRONIC [None]
